FAERS Safety Report 21140107 (Version 2)
Quarter: 2022Q3

REPORT INFORMATION
  Report Type: Spontaneous
  Country: IN (occurrence: IN)
  Receive Date: 20220728
  Receipt Date: 20220801
  Transmission Date: 20221027
  Serious: Yes (Death, Other)
  Sender: FDA-Public Use
  Company Number: IN-ALLERGAN-2224134US

PATIENT
  Sex: Male

DRUGS (3)
  1. MESALAMINE [Suspect]
     Active Substance: MESALAMINE
     Indication: Crohn^s disease
     Dosage: 1 G, QD
  2. LEVOTHYROXINE [Suspect]
     Active Substance: LEVOTHYROXINE
     Indication: Hypothyroidism
     Dosage: 25 ?G, QD
  3. ITOLIZUMAB [Concomitant]
     Active Substance: ITOLIZUMAB
     Indication: Inflammatory marker increased

REACTIONS (2)
  - Sudden cardiac death [Fatal]
  - Idiosyncratic drug reaction [Unknown]
